FAERS Safety Report 16096617 (Version 1)
Quarter: 2019Q1

REPORT INFORMATION
  Report Type: Spontaneous
  Country: US (occurrence: US)
  Receive Date: 20190320
  Receipt Date: 20190320
  Transmission Date: 20190418
  Serious: No
  Sender: FDA-Public Use
  Company Number: US-SA-2019SA066224

PATIENT

DRUGS (31)
  1. CARBIDOPA/LEVODOPA [Suspect]
     Active Substance: CARBIDOPA\LEVODOPA
  2. LAMOTRIGINE. [Suspect]
     Active Substance: LAMOTRIGINE
  3. GABAPENTIN. [Suspect]
     Active Substance: GABAPENTIN
  4. PROVIGIL [Suspect]
     Active Substance: MODAFINIL
  5. DAYPRO [Suspect]
     Active Substance: OXAPROZIN
  6. FENTANYL. [Suspect]
     Active Substance: FENTANYL
  7. GABITRIL [Suspect]
     Active Substance: TIAGABINE HYDROCHLORIDE
  8. INDOCIN [Suspect]
     Active Substance: INDOMETHACIN
  9. NABUMETONE. [Suspect]
     Active Substance: NABUMETONE
  10. REQUIP [Suspect]
     Active Substance: ROPINIROLE HYDROCHLORIDE
  11. DIPHENHYDRAMINE HYDROCHLORIDE. [Suspect]
     Active Substance: DIPHENHYDRAMINE HYDROCHLORIDE
  12. CIPROFLOXACIN. [Suspect]
     Active Substance: CIPROFLOXACIN
  13. DEMEROL [Suspect]
     Active Substance: MEPERIDINE HYDROCHLORIDE
  14. KEFLEX [Suspect]
     Active Substance: CEPHALEXIN
  15. PROMETHAZINE [Suspect]
     Active Substance: PROMETHAZINE\PROMETHAZINE HYDROCHLORIDE
  16. DONEPEZIL HYDROCHLORIDE. [Suspect]
     Active Substance: DONEPEZIL HYDROCHLORIDE
  17. PRAMIPEXOLE HYDROCHLORIDE [Suspect]
     Active Substance: PRAMIPEXOLE DIHYDROCHLORIDE
  18. PAROXETINE HYDROCHLORIDE. [Suspect]
     Active Substance: PAROXETINE HYDROCHLORIDE
  19. TRAZODONE HYDROCHLORIDE. [Suspect]
     Active Substance: TRAZODONE HYDROCHLORIDE
  20. HYDROCODONE [Suspect]
     Active Substance: HYDROCODONE
  21. LEXAPRO [Suspect]
     Active Substance: ESCITALOPRAM OXALATE
  22. VENLAFAXINE HYDROCHLORIDE. [Suspect]
     Active Substance: VENLAFAXINE HYDROCHLORIDE
  23. ZONISAMIDE. [Suspect]
     Active Substance: ZONISAMIDE
  24. AMITRIPTYLINE HYDROCHLORIDE. [Suspect]
     Active Substance: AMITRIPTYLINE HYDROCHLORIDE
  25. CODEINE [Suspect]
     Active Substance: CODEINE
  26. CORTIZONE 10 [Suspect]
     Active Substance: HYDROCORTISONE
  27. CYMBALTA [Suspect]
     Active Substance: DULOXETINE HYDROCHLORIDE
  28. TALWIN NX [Suspect]
     Active Substance: NALOXONE HYDROCHLORIDE\PENTAZOCINE HYDROCHLORIDE
  29. AMBIEN [Suspect]
     Active Substance: ZOLPIDEM TARTRATE
  30. HYCOTUSS [Suspect]
     Active Substance: GUAIFENESIN\HYDROCODONE BITARTRATE
  31. LEVETIRACETAM. [Suspect]
     Active Substance: LEVETIRACETAM

REACTIONS (10)
  - Pruritus [Unknown]
  - Headache [Unknown]
  - Urticaria [Unknown]
  - Agitation [Unknown]
  - Nausea [Unknown]
  - Dizziness [Unknown]
  - Insomnia [Unknown]
  - Confusional state [Unknown]
  - Fatigue [Unknown]
  - Rash [Unknown]
